FAERS Safety Report 25623510 (Version 1)
Quarter: 2025Q3

REPORT INFORMATION
  Report Type: Spontaneous
  Country: EU (occurrence: EU)
  Receive Date: 20250730
  Receipt Date: 20250730
  Transmission Date: 20251021
  Serious: Yes (Disabling, Other)
  Sender: ABBVIE
  Company Number: EU-FERRINGPH-2025FE03621

PATIENT
  Age: 48 Year
  Sex: Female

DRUGS (3)
  1. ENANTONE LP [Suspect]
     Active Substance: LEUPROLIDE ACETATE
     Indication: Product used for unknown indication
     Route: 030
  2. DUPHASTON [Concomitant]
     Active Substance: DYDROGESTERONE
     Indication: Product used for unknown indication
     Route: 065
  3. DECAPEPTYL (ACETATE) [Suspect]
     Active Substance: TRIPTORELIN ACETATE
     Indication: Leiomyoma
     Route: 058

REACTIONS (12)
  - Monoplegia [Unknown]
  - Muscle spasms [Unknown]
  - Muscle twitching [Unknown]
  - Vomiting [Unknown]
  - Burning sensation [Unknown]
  - Drug ineffective [Unknown]
  - Spinal cord ischaemia [Unknown]
  - Back pain [Unknown]
  - Muscle atrophy [Unknown]
  - Menstrual disorder [Unknown]
  - Oedema [Unknown]
  - Muscular weakness [Unknown]
